FAERS Safety Report 8807618 (Version 2)
Quarter: 2012Q4

REPORT INFORMATION
  Report Type: 
  Country: US (occurrence: US)
  Receive Date: 20120925
  Receipt Date: 20121130
  Transmission Date: 20130627
  Serious: Yes (Hospitalization, Other)
  Sender: FDA-Public Use
  Company Number: US-PFIZER INC-2012231420

PATIENT
  Age: 74 Year
  Sex: Female
  Weight: 125 kg

DRUGS (3)
  1. REVATIO [Suspect]
     Indication: PULMONARY ARTERIAL HYPERTENSION
     Dosage: 20 mg, 3x/day
     Route: 048
  2. REVATIO [Suspect]
     Dosage: 20 mg, UNK
     Route: 048
  3. REVATIO [Suspect]
     Dosage: 20 mg, 2x/day
     Route: 048
     Dates: end: 201206

REACTIONS (5)
  - Abdominal strangulated hernia [Recovered/Resolved]
  - Urinary tract infection [Unknown]
  - Urinary tract infection [Recovered/Resolved]
  - Body height decreased [Unknown]
  - Weight fluctuation [Unknown]
